FAERS Safety Report 6627036-4 (Version None)
Quarter: 2010Q1

REPORT INFORMATION
  Report Type: 
  Country: None (occurrence: None)
  Receive Date: 20100308
  Receipt Date: 20100224
  Transmission Date: 20100710
  Serious: Yes (Hospitalization)
  Sender: FDA-Public Use
  Company Number: WAES 0911FRA00099

PATIENT
  Age: 68 Year
  Sex: Male

DRUGS (4)
  1. ZOLINZA [Suspect]
     Indication: MYELODYSPLASTIC SYNDROME
     Dosage: 400 MG/DAILY, PO, 400 MG/DAILY, PO
     Route: 048
     Dates: start: 20091001, end: 20091014
  2. ZOLINZA [Suspect]
     Indication: MYELODYSPLASTIC SYNDROME
     Dosage: 400 MG/DAILY, PO, 400 MG/DAILY, PO
     Route: 048
     Dates: start: 20091030, end: 20091112
  3. CYTARABINE [Suspect]
     Indication: MYELODYSPLASTIC SYNDROME
     Dosage: 38 MG/DAILY, SC, 38 MG/DAILY, SC
     Route: 058
     Dates: start: 20091001, end: 20091014
  4. CYTARABINE [Suspect]
     Indication: MYELODYSPLASTIC SYNDROME
     Dosage: 38 MG/DAILY, SC, 38 MG/DAILY, SC
     Route: 058
     Dates: start: 20091030, end: 20091112

REACTIONS (5)
  - ACUTE MYELOID LEUKAEMIA [None]
  - CONDITION AGGRAVATED [None]
  - FEBRILE NEUTROPENIA [None]
  - MYELODYSPLASTIC SYNDROME [None]
  - SQUAMOUS CELL CARCINOMA [None]
